FAERS Safety Report 11299107 (Version 2)
Quarter: 2015Q3

REPORT INFORMATION
  Report Type: Spontaneous
  Country: US (occurrence: US)
  Receive Date: 20150722
  Receipt Date: 20150821
  Transmission Date: 20151125
  Serious: No
  Sender: FDA-Public Use
  Company Number: US-ELI_LILLY_AND_COMPANY-US201206005647

PATIENT
  Sex: Male

DRUGS (10)
  1. EFFIENT [Suspect]
     Active Substance: PRASUGREL HYDROCHLORIDE
     Dosage: 10 MG, UNK
     Route: 048
     Dates: start: 2008
  2. HUMULIN R [Suspect]
     Active Substance: INSULIN HUMAN
     Dosage: 10 U, UNK
  3. DIURETICS [Concomitant]
     Active Substance: UNSPECIFIED INGREDIENT
  4. EFFIENT [Suspect]
     Active Substance: PRASUGREL HYDROCHLORIDE
     Dosage: 10 MG, UNK
     Route: 048
     Dates: start: 2008
  5. VITAMINS NOS [Concomitant]
     Active Substance: VITAMINS
  6. TOPIROL [Concomitant]
     Active Substance: TOPIRAMATE
     Dosage: 100 MG, UNK
  7. DICYCLOMINE [Concomitant]
     Active Substance: DICYCLOMINE HYDROCHLORIDE
     Indication: ABDOMINAL PAIN UPPER
  8. POTASSIUM [Concomitant]
     Active Substance: POTASSIUM
  9. HUMULIN R [Suspect]
     Active Substance: INSULIN HUMAN
     Dosage: 12 U, UNK
  10. PREVACID [Concomitant]
     Active Substance: LANSOPRAZOLE
     Dosage: 30 MG, UNK

REACTIONS (13)
  - Swollen tongue [Unknown]
  - Abdominal pain upper [Unknown]
  - Cough [Unknown]
  - Headache [Unknown]
  - Fatigue [Unknown]
  - Pruritus generalised [Unknown]
  - Incorrect product storage [Unknown]
  - Chest discomfort [Unknown]
  - Gingival bleeding [Unknown]
  - Blood glucose decreased [Recovered/Resolved]
  - Back pain [Unknown]
  - Irritable bowel syndrome [Unknown]
  - Dyspnoea [Unknown]
